FAERS Safety Report 5201132-0 (Version None)
Quarter: 2007Q1

REPORT INFORMATION
  Report Type: 
  Country: None (occurrence: None)
  Receive Date: 20070103
  Receipt Date: 20061221
  Transmission Date: 20070707
  Serious: Yes (Death)
  Sender: FDA-Public Use
  Company Number: E2020-00746-SPO-GB

PATIENT
  Age: 76 Year
  Sex: Female

DRUGS (4)
  1. ARICEPT [Suspect]
     Indication: DEMENTIA ALZHEIMER'S TYPE
     Dosage: 10 MG, 1 IN 1 D, ORAL
     Route: 048
     Dates: start: 20050101
  2. ZOPICLONE (ZOPICLONE) [Concomitant]
  3. FLUPENTIXOL (FLUPENTIXOL) [Concomitant]
  4. MIRTAZAPINE [Concomitant]

REACTIONS (2)
  - BRONCHOPNEUMONIA [None]
  - EMPHYSEMA [None]
